FAERS Safety Report 12316588 (Version 1)
Quarter: 2016Q2

REPORT INFORMATION
  Report Type: Spontaneous
  Country: US (occurrence: US)
  Receive Date: 20160429
  Receipt Date: 20160429
  Transmission Date: 20160815
  Serious: No
  Sender: FDA-Public Use
  Company Number: US-TEVA-650729ACC

PATIENT
  Sex: Female
  Weight: 45.4 kg

DRUGS (4)
  1. IRON [Concomitant]
     Active Substance: IRON
     Indication: MINERAL SUPPLEMENTATION
  2. PARAGARD T 380A [Suspect]
     Active Substance: COPPER
     Dates: start: 20160331
  3. PARAGARD T 380A [Suspect]
     Active Substance: COPPER
     Indication: CONTRACEPTION
     Dates: start: 20160303, end: 20160331
  4. PRENATAL VITAMINS [Concomitant]
     Active Substance: VITAMINS
     Indication: VITAMIN SUPPLEMENTATION

REACTIONS (3)
  - Device expulsion [Recovered/Resolved]
  - Exposure during breast feeding [Unknown]
  - Vaginal haemorrhage [Unknown]
